FAERS Safety Report 10578416 (Version 1)
Quarter: 2014Q4

REPORT INFORMATION
  Report Type: Spontaneous
  Country: US (occurrence: None)
  Receive Date: 20141111
  Receipt Date: 20141111
  Transmission Date: 20150529
  Serious: Yes (Life-Threatening, Disabling)
  Sender: FDA-Public Use
  Company Number: None

PATIENT
  Age: 62 Year
  Sex: Female
  Weight: 51.26 kg

DRUGS (1)
  1. CEFTIN [Suspect]
     Active Substance: CEFUROXIME AXETIL
     Indication: THROAT IRRITATION
     Dosage: 1
     Route: 048
     Dates: start: 20140519, end: 20140521

REACTIONS (6)
  - Palpitations [None]
  - Paraesthesia [None]
  - Scar pain [None]
  - Iron deficiency [None]
  - Urticaria [None]
  - Tinnitus [None]

NARRATIVE: CASE EVENT DATE: 20140519
